FAERS Safety Report 12454995 (Version 1)
Quarter: 2016Q2

REPORT INFORMATION
  Report Type: Spontaneous
  Country: US (occurrence: US)
  Receive Date: 20160610
  Receipt Date: 20160610
  Transmission Date: 20160815
  Serious: No
  Sender: FDA-Public Use
  Company Number: US-PFIZER INC-2016293661

PATIENT
  Age: 70 Year
  Sex: Male

DRUGS (3)
  1. CYTOMEL [Suspect]
     Active Substance: LIOTHYRONINE SODIUM
     Indication: HYPOTHYROIDISM
     Dosage: 15 UG, 1X/DAY
     Dates: start: 2008
  2. LEVOXYL [Concomitant]
     Active Substance: LEVOTHYROXINE SODIUM
     Dosage: 62 UG, UNK
     Dates: start: 2008
  3. DOUGLAS DHEA [Concomitant]
     Dosage: 25 MG, UNK
     Dates: start: 2010

REACTIONS (1)
  - Antibody test abnormal [Recovered/Resolved]
